FAERS Safety Report 12011716 (Version 4)
Quarter: 2017Q3

REPORT INFORMATION
  Report Type: Spontaneous
  Country: FR (occurrence: FR)
  Receive Date: 20160205
  Receipt Date: 20170809
  Transmission Date: 20171127
  Serious: Yes (Death, Life-Threatening, Hospitalization, Disabling, Other)
  Sender: FDA-Public Use
  Company Number: FR-ASTELLAS-2016US004246

PATIENT
  Sex: Male
  Weight: 65 kg

DRUGS (1)
  1. PROGRAF [Suspect]
     Active Substance: TACROLIMUS\TACROLIMUS ANHYDROUS
     Indication: PRODUCT USED FOR UNKNOWN INDICATION
     Route: 048
     Dates: start: 201005

REACTIONS (5)
  - Intentional product misuse [Unknown]
  - Neoplasm malignant [Fatal]
  - Metastases to central nervous system [Unknown]
  - Dysphagia [Not Recovered/Not Resolved]
  - Walking disability [Not Recovered/Not Resolved]
